FAERS Safety Report 5615542-0 (Version None)
Quarter: 2008Q1

REPORT INFORMATION
  Report Type: 
  Country: None (occurrence: None)
  Receive Date: 20080204
  Receipt Date: 20080204
  Transmission Date: 20080703
  Serious: Yes (Hospitalization)
  Sender: FDA-Public Use
  Company Number: None

PATIENT
  Age: 75 Year
  Sex: Male

DRUGS (2)
  1. DOXAZOSIN MESYLATE [Suspect]
     Indication: HYPERTENSION
     Dosage: 8MG EVERY DAY PO
     Route: 048
     Dates: start: 20050922, end: 20071220
  2. FUROSEMIDE [Suspect]
     Indication: PULMONARY EMBOLISM
     Dosage: 60MG BID PO
     Route: 048
     Dates: start: 20040701, end: 20071220

REACTIONS (6)
  - BLOOD PRESSURE SYSTOLIC INCREASED [None]
  - BRADYCARDIA [None]
  - DIZZINESS [None]
  - HYPOTENSION [None]
  - PRESYNCOPE [None]
  - SYNCOPE [None]
